FAERS Safety Report 18409975 (Version 1)
Quarter: 2020Q4

REPORT INFORMATION
  Report Type: Spontaneous
  Country: US (occurrence: US)
  Receive Date: 20201021
  Receipt Date: 20201021
  Transmission Date: 20210114
  Serious: No
  Sender: FDA-Public Use
  Company Number: None

PATIENT
  Age: 47 Year
  Sex: Female
  Weight: 54 kg

DRUGS (1)
  1. RX# 6565344 OMEPRAZOLE DR 40 MG CAPSULE [Suspect]
     Active Substance: OMEPRAZOLE
     Indication: OESOPHAGEAL IRRITATION
     Dosage: ?          QUANTITY:90 CAPSULE(S);?
     Route: 048

REACTIONS (7)
  - Pain in extremity [None]
  - Arthralgia [None]
  - Headache [None]
  - Sleep disorder [None]
  - Restless legs syndrome [None]
  - Back pain [None]
  - Myalgia [None]

NARRATIVE: CASE EVENT DATE: 20201015
